FAERS Safety Report 9601905 (Version 6)
Quarter: 2013Q4

REPORT INFORMATION
  Report Type: Spontaneous
  Country: US (occurrence: US)
  Receive Date: 20131007
  Receipt Date: 20131128
  Transmission Date: 20140711
  Serious: Yes (Death, Hospitalization, Other)
  Sender: FDA-Public Use
  Company Number: US-JNJFOC-20131002424

PATIENT
  Age: 73 Year
  Sex: Female
  Weight: 68.95 kg

DRUGS (11)
  1. XARELTO [Suspect]
     Indication: PULMONARY EMBOLISM
     Route: 048
     Dates: start: 20130724, end: 20130726
  2. MEGACE [Suspect]
     Indication: PRODUCT USED FOR UNKNOWN INDICATION
     Route: 065
  3. CARBIDOPA [Concomitant]
     Indication: PARKINSON^S DISEASE
     Route: 065
  4. LEVODOPA [Concomitant]
     Indication: PARKINSON^S DISEASE
     Route: 065
  5. XARELTO [Suspect]
     Indication: DEEP VEIN THROMBOSIS
     Route: 048
     Dates: start: 2013
  6. XARELTO [Suspect]
     Indication: DEEP VEIN THROMBOSIS
     Route: 048
     Dates: start: 20130724, end: 20130726
  7. XARELTO [Suspect]
     Indication: ATRIAL FIBRILLATION
     Route: 048
     Dates: start: 20130724, end: 20130726
  8. XARELTO [Suspect]
     Indication: ATRIAL FIBRILLATION
     Route: 048
     Dates: start: 2013
  9. XARELTO [Suspect]
     Indication: CEREBROVASCULAR ACCIDENT PROPHYLAXIS
     Route: 048
     Dates: start: 20130724, end: 20130726
  10. XARELTO [Suspect]
     Indication: CEREBROVASCULAR ACCIDENT PROPHYLAXIS
     Route: 048
     Dates: start: 2013
  11. XARELTO [Suspect]
     Indication: PULMONARY EMBOLISM
     Route: 048
     Dates: start: 2013

REACTIONS (12)
  - Hypoxic-ischaemic encephalopathy [Unknown]
  - Coagulopathy [Unknown]
  - Hypoxia [Unknown]
  - Shock haemorrhagic [Unknown]
  - Epistaxis [Unknown]
  - Hypotension [Unknown]
  - Fall [Unknown]
  - Blood albumin decreased [Unknown]
  - Pneumonia aspiration [Unknown]
  - Medication error [Unknown]
  - Contusion [Unknown]
  - Haemorrhage [Fatal]
